FAERS Safety Report 4568218-5 (Version None)
Quarter: 2005Q1

REPORT INFORMATION
  Report Type: 
  Country: None (occurrence: None)
  Receive Date: 20050131
  Receipt Date: 20050117
  Transmission Date: 20050727
  Serious: Yes (Other)
  Sender: FDA-Public Use
  Company Number: 2005015236

PATIENT
  Age: 29 Year
  Sex: Female
  Weight: 63.5 kg

DRUGS (2)
  1. SERTRALINE HCL [Suspect]
     Indication: OBSESSIVE-COMPULSIVE DISORDER
     Dosage: 200 MG, ORAL
     Route: 048
     Dates: start: 20040501, end: 20040923
  2. DIANE (CYPROTERONE ACETATE, ETHINYLESTRADIOL) [Concomitant]

REACTIONS (1)
  - CONTUSION [None]
